FAERS Safety Report 5874348-8 (Version None)
Quarter: 2008Q3

REPORT INFORMATION
  Report Type: 
  Country: None (occurrence: None)
  Receive Date: 20080908
  Receipt Date: 20080903
  Transmission Date: 20090109
  Serious: Yes (Death)
  Sender: FDA-Public Use
  Company Number: US-GILEAD-2008-0017764

PATIENT
  Sex: Female

DRUGS (10)
  1. LETAIRIS [Suspect]
     Indication: PULMONARY ARTERIAL HYPERTENSION
     Route: 048
     Dates: start: 20080808
  2. LASIX [Concomitant]
     Dosage: AS DIRECTED
     Route: 048
  3. PREDNISONE [Concomitant]
     Dosage: AS DIRECTED
     Route: 048
  4. LORATADINE [Concomitant]
     Dosage: AS DIRECTED
     Route: 048
  5. REVATIO [Concomitant]
     Dosage: AS DIRECTED
     Route: 048
  6. FLONASE [Concomitant]
     Dosage: AS DIRECTED
     Route: 055
  7. ADVAIR DISKUS 100/50 [Concomitant]
     Dosage: AS DIRECTED
     Route: 055
  8. POTASSIUM CHLORIDE [Concomitant]
     Dosage: AS DIRECTED
     Route: 048
  9. ATROVENT [Concomitant]
     Dosage: AS DIRECTED
     Route: 055
  10. SKIN CREAM [Concomitant]
     Dosage: AS DIRECTED
     Route: 061

REACTIONS (3)
  - DEATH [None]
  - FATIGUE [None]
  - NASAL CONGESTION [None]
